FAERS Safety Report 23990586 (Version 1)
Quarter: 2024Q2

REPORT INFORMATION
  Report Type: Spontaneous
  Country: JP (occurrence: JP)
  Receive Date: 20240619
  Receipt Date: 20240619
  Transmission Date: 20240716
  Serious: Yes (Other)
  Sender: FDA-Public Use
  Company Number: JP-TAIHO-2024-005894

PATIENT
  Age: 7 Decade
  Sex: Female

DRUGS (1)
  1. ABRAXANE [Suspect]
     Active Substance: PACLITAXEL
     Indication: Lung neoplasm malignant
     Dosage: DETAILS NOT REPORTED, IN THE MIDDLE OF CYCLE 6?DAILY DOSE: 100 MILLIGRAM(S)/KILOGRAM
     Route: 041
     Dates: start: 20240206, end: 20240604

REACTIONS (2)
  - Renal impairment [Recovered/Resolved]
  - Blood potassium decreased [Recovered/Resolved]
